FAERS Safety Report 24630713 (Version 1)
Quarter: 2024Q4

REPORT INFORMATION
  Report Type: Spontaneous
  Country: FR (occurrence: FR)
  Receive Date: 20241118
  Receipt Date: 20241118
  Transmission Date: 20250114
  Serious: Yes (Other)
  Sender: SANOFI AVENTIS
  Company Number: None

PATIENT
  Age: 77 Year
  Sex: Female
  Weight: 119 kg

DRUGS (5)
  1. FASTURTEC [Suspect]
     Active Substance: RASBURICASE
     Indication: Diffuse large B-cell lymphoma recurrent
     Dosage: 7.5 MG, QW; 4 ADMINISTRATIONS
     Route: 042
     Dates: start: 20240623, end: 20240709
  2. VINCRISTINE [Suspect]
     Active Substance: VINCRISTINE
     Indication: Diffuse large B-cell lymphoma stage II
     Dosage: 1 MG
     Route: 042
     Dates: start: 20240702, end: 20240702
  3. CEFTRIAXONE [Suspect]
     Active Substance: CEFTRIAXONE
     Indication: Antibiotic prophylaxis
     Dosage: 1 G, QD
     Route: 042
     Dates: start: 20240628, end: 20240707
  4. BACTRIM [Concomitant]
     Active Substance: SULFAMETHOXAZOLE\TRIMETHOPRIM
     Indication: Prophylaxis
     Dosage: 1 DF, Q3W
     Dates: start: 20240628
  5. VALACYCLOVIR HYDROCHLORIDE [Concomitant]
     Active Substance: VALACYCLOVIR HYDROCHLORIDE
     Indication: Prophylaxis
     Dosage: 500 MG, QD
     Dates: start: 20240628

REACTIONS (1)
  - Epilepsy [Recovered/Resolved]

NARRATIVE: CASE EVENT DATE: 20240707
